FAERS Safety Report 17534971 (Version 6)
Quarter: 2021Q2

REPORT INFORMATION
  Report Type: Spontaneous
  Country: DE (occurrence: DE)
  Receive Date: 20200312
  Receipt Date: 20210422
  Transmission Date: 20210716
  Serious: Yes (Other)
  Sender: FDA-Public Use
  Company Number: DE-AKCEA THERAPEUTICS-2019IS001249

PATIENT
  Age: 32 Year
  Sex: Female

DRUGS (5)
  1. TEGSEDI [Suspect]
     Active Substance: INOTERSEN SODIUM
     Route: 065
  2. TEGSEDI [Suspect]
     Active Substance: INOTERSEN SODIUM
     Indication: PRODUCT USED FOR UNKNOWN INDICATION
     Route: 065
     Dates: start: 20181207
  3. TEGSEDI [Suspect]
     Active Substance: INOTERSEN SODIUM
     Route: 065
  4. VITAMIN A /00056001/ [Concomitant]
     Active Substance: RETINOL
     Dates: start: 202102
  5. ISSD (INTEGRATED SYRINGE SAFETY DEVICE) [Suspect]
     Active Substance: DEVICE

REACTIONS (31)
  - Neck pain [Recovered/Resolved]
  - Alopecia [Unknown]
  - Chills [Recovered/Resolved]
  - Night blindness [Recovering/Resolving]
  - Hyperhidrosis [Recovered/Resolved]
  - Injection site swelling [Recovered/Resolved]
  - Vomiting [Not Recovered/Not Resolved]
  - Asthenia [Unknown]
  - Respiratory distress [Recovered/Resolved]
  - Dyspnoea [Recovered/Resolved]
  - Musculoskeletal chest pain [Recovered/Resolved]
  - Injection site pain [Unknown]
  - Pain [Recovered/Resolved]
  - Nausea [Unknown]
  - Vitamin A decreased [Recovering/Resolving]
  - Injection site rash [Unknown]
  - Injection site bruising [Unknown]
  - Cardiovascular disorder [Recovered/Resolved]
  - Dyspepsia [Recovered/Resolved]
  - Pain in extremity [Recovered/Resolved]
  - Injection site erythema [Recovered/Resolved]
  - Injection site pruritus [Recovered/Resolved]
  - Fatigue [Unknown]
  - Panic attack [Recovered/Resolved]
  - Hair growth abnormal [Not Recovered/Not Resolved]
  - Arthralgia [Recovered/Resolved]
  - Oral herpes [Recovered/Resolved]
  - Trichoglossia [Recovered/Resolved]
  - Tremor [Recovered/Resolved]
  - Hypersensitivity [Recovered/Resolved]
  - Abdominal pain [Recovered/Resolved]

NARRATIVE: CASE EVENT DATE: 20181207
